FAERS Safety Report 4327562-7 (Version None)
Quarter: 2004Q1

REPORT INFORMATION
  Report Type: 
  Country: None (occurrence: None)
  Receive Date: 20040325
  Receipt Date: 20040316
  Transmission Date: 20041129
  Serious: Yes (Death)
  Sender: FDA-Public Use
  Company Number: 2004AP01728

PATIENT
  Sex: Female

DRUGS (5)
  1. ARIMIDEX [Suspect]
     Indication: BREAST CANCER
     Dosage: 1 MG DAILY PO
     Route: 048
  2. AROMASIN [Concomitant]
  3. EPIRUBICIN [Concomitant]
  4. ENDOXAN [Concomitant]
  5. FURTULON [Concomitant]

REACTIONS (1)
  - DEPRESSION [None]
